FAERS Safety Report 4675813-1 (Version None)
Quarter: 2005Q2

REPORT INFORMATION
  Report Type: 
  Country: None (occurrence: None)
  Receive Date: 20050527
  Receipt Date: 20050426
  Transmission Date: 20051028
  Serious: Yes (Other)
  Sender: FDA-Public Use
  Company Number: JP-NOVOPROD-243848

PATIENT
  Age: 30 Year
  Sex: Female
  Weight: 61 kg

DRUGS (3)
  1. NOVOLET R CHU [Suspect]
     Indication: DIABETES MELLITUS
     Dosage: 18+4+24=46IU QD
     Route: 058
     Dates: start: 20010601
  2. NOVOLET N CHU [Suspect]
     Indication: DIABETES MELLITUS
     Dosage: 12 IU, QD
     Route: 058
     Dates: start: 20010601
  3. ALOSENN [Concomitant]
     Dosage: .5 G, UNK
     Route: 048

REACTIONS (7)
  - CATARACT OPERATION [None]
  - DIABETIC RETINOPATHY [None]
  - DRUG EXPOSURE DURING PREGNANCY [None]
  - EYE HAEMORRHAGE [None]
  - GLYCOSYLATED HAEMOGLOBIN INCREASED [None]
  - PREGNANCY [None]
  - VITREOUS HAEMORRHAGE [None]
